FAERS Safety Report 9347772 (Version 4)
Quarter: 2013Q3

REPORT INFORMATION
  Report Type: Spontaneous
  Country: US (occurrence: US)
  Receive Date: 20130614
  Receipt Date: 20130729
  Transmission Date: 20140515
  Serious: No
  Sender: FDA-Public Use
  Company Number: US-PFIZER INC-2013175504

PATIENT
  Age: 57 Year
  Sex: Female
  Weight: 89.8 kg

DRUGS (1)
  1. PREMARIN [Suspect]
     Indication: HORMONE REPLACEMENT THERAPY
     Dosage: 0.3 MG, UNK
     Dates: start: 2006

REACTIONS (2)
  - Gastroenteritis viral [Unknown]
  - Nasopharyngitis [Unknown]
